FAERS Safety Report 25219072 (Version 3)
Quarter: 2025Q3

REPORT INFORMATION
  Report Type: Report from Study
  Country: US (occurrence: US)
  Receive Date: 20250421
  Receipt Date: 20250721
  Transmission Date: 20251021
  Serious: No
  Sender: BIOVITRUM
  Company Number: US-BIOVITRUM-2025-US-004584

PATIENT
  Age: 38 Year
  Sex: Female

DRUGS (1)
  1. DOPTELET [Suspect]
     Active Substance: AVATROMBOPAG MALEATE
     Indication: Immune thrombocytopenia
     Route: 048
     Dates: start: 20250307

REACTIONS (3)
  - Sciatica [Recovering/Resolving]
  - Platelet count increased [Unknown]
  - White blood cell count increased [Not Recovered/Not Resolved]
